FAERS Safety Report 5106024-3 (Version None)
Quarter: 2006Q3

REPORT INFORMATION
  Report Type: 
  Country: None (occurrence: None)
  Receive Date: 20060915
  Receipt Date: 20060908
  Transmission Date: 20061208
  Serious: Yes (Disabling, Other)
  Sender: FDA-Public Use
  Company Number: GB-ABBOTT-06P-151-0343545-00

PATIENT
  Sex: Female
  Weight: 98 kg

DRUGS (3)
  1. FENOFIBRATE [Suspect]
     Indication: TYPE III HYPERLIPIDAEMIA
     Route: 048
     Dates: start: 19970101, end: 20040101
  2. CIPROFIBRATE [Concomitant]
     Indication: DRUG USE FOR UNKNOWN INDICATION
     Dates: start: 20040101, end: 20040101
  3. BEZAFIBRATE [Concomitant]
     Indication: DRUG USE FOR UNKNOWN INDICATION
     Dates: start: 20040101, end: 20040101

REACTIONS (3)
  - BLISTER [None]
  - RASH [None]
  - SCAR [None]
